FAERS Safety Report 13115171 (Version 1)
Quarter: 2017Q1

REPORT INFORMATION
  Report Type: Spontaneous
  Country: BR (occurrence: BR)
  Receive Date: 20170113
  Receipt Date: 20170113
  Transmission Date: 20170428
  Serious: Yes (Other)
  Sender: FDA-Public Use
  Company Number: BR-GLAXOSMITHKLINE-BR2017GSK001840

PATIENT
  Sex: Female
  Weight: 87 kg

DRUGS (7)
  1. DONAREN [Concomitant]
     Active Substance: TRAZODONE HYDROCHLORIDE
     Indication: DEPRESSION
  2. DONAREN [Concomitant]
     Active Substance: TRAZODONE HYDROCHLORIDE
     Indication: ANXIETY
     Dosage: 250 MG, QD
     Route: 048
  3. DONAREN [Concomitant]
     Active Substance: TRAZODONE HYDROCHLORIDE
     Indication: SLEEP DISORDER
  4. WELLBUTRIN XL [Suspect]
     Active Substance: BUPROPION HYDROCHLORIDE
     Indication: DEPRESSION
  5. DONAREN [Concomitant]
     Active Substance: TRAZODONE HYDROCHLORIDE
     Indication: PANIC REACTION
  6. WELLBUTRIN XL [Suspect]
     Active Substance: BUPROPION HYDROCHLORIDE
     Indication: ANXIETY
     Dosage: 450 MG, QD
     Route: 048
  7. WELLBUTRIN XL [Suspect]
     Active Substance: BUPROPION HYDROCHLORIDE
     Indication: PANIC REACTION

REACTIONS (16)
  - Pyrexia [Recovered/Resolved]
  - Ear discomfort [Recovered/Resolved]
  - Depression [Recovered/Resolved]
  - Product use issue [Not Recovered/Not Resolved]
  - Overdose [Not Recovered/Not Resolved]
  - Blood urine [Recovered/Resolved]
  - Zika virus infection [Recovered/Resolved]
  - Deafness bilateral [Recovered/Resolved]
  - Panic reaction [Recovered/Resolved]
  - Vulvovaginal burning sensation [Recovered/Resolved]
  - Condition aggravated [Unknown]
  - Ear disorder [Recovered/Resolved]
  - Off label use [Not Recovered/Not Resolved]
  - Drug dependence [Not Recovered/Not Resolved]
  - Urinary tract infection [Recovered/Resolved]
  - Anxiety [Recovered/Resolved]

NARRATIVE: CASE EVENT DATE: 2015
